FAERS Safety Report 8488884-1 (Version None)
Quarter: 2012Q3

REPORT INFORMATION
  Report Type: 
  Country: None (occurrence: None)
  Receive Date: 20120705
  Receipt Date: 20120628
  Transmission Date: 20120928
  Serious: Yes (Death, Life-Threatening)
  Sender: FDA-Public Use
  Company Number: JP-SANOFI-AVENTIS-2012SA033978

PATIENT
  Age: 81 Year
  Sex: Male
  Weight: 58 kg

DRUGS (5)
  1. DOCETAXEL [Suspect]
     Indication: PROSTATE CANCER
     Dosage: FREQUENCY- 100MG/DAY, EVERY 4 WEEKS
     Route: 041
     Dates: start: 20120203, end: 20120406
  2. TAXOTERE [Suspect]
     Indication: PROSTATE CANCER
     Dosage: FREQUENCY- 100MG/DAY, EVERY 4 WEEKS
     Route: 042
     Dates: start: 20100129, end: 20120106
  3. ZOLADEX [Concomitant]
     Indication: PROSTATE CANCER
     Dosage: EVERY 12 WEEKS
     Dates: end: 20120406
  4. ZOMETA [Concomitant]
     Dosage: EVERY 4 WEEKS
     Dates: start: 20100129, end: 20120406
  5. ALOXI [Concomitant]
     Dosage: EVERY 4 WEEKS
     Dates: start: 20100129, end: 20120406

REACTIONS (5)
  - RESPIRATORY DISORDER [None]
  - PYREXIA [None]
  - DYSPNOEA [None]
  - INTERSTITIAL LUNG DISEASE [None]
  - PNEUMONIA [None]
